FAERS Safety Report 12115630 (Version 1)
Quarter: 2016Q1

REPORT INFORMATION
  Report Type: Spontaneous
  Country: BR (occurrence: BR)
  Receive Date: 20160225
  Receipt Date: 20160225
  Transmission Date: 20160526
  Serious: Yes (Hospitalization, Other)
  Sender: FDA-Public Use
  Company Number: BR-GLAXOSMITHKLINE-BR2016GSK025592

PATIENT
  Sex: Female
  Weight: 66 kg

DRUGS (4)
  1. LOSARTAN. [Concomitant]
     Active Substance: LOSARTAN
     Indication: BLOOD PRESSURE MANAGEMENT
     Dosage: 50 MG, QD
     Route: 048
  2. PURAN [Concomitant]
     Active Substance: LEVOTHYROXINE SODIUM
     Indication: THYROID DISORDER
     Dosage: 172 MG, QD
     Route: 048
  3. DEPAKENE [Concomitant]
     Active Substance: VALPROIC ACID
     Indication: NEUROLOGICAL SYMPTOM
     Dosage: 3 UNK, QD
     Route: 048
  4. SERETIDE [Suspect]
     Active Substance: FLUTICASONE FUROATE\SALMETEROL XINAFOATE
     Indication: EMPHYSEMA
     Dosage: 120 DOSES,1 PUFF(S), BID
     Route: 055
     Dates: start: 201411

REACTIONS (2)
  - Hernia [Recovered/Resolved]
  - Diverticulitis [Recovered/Resolved]
